FAERS Safety Report 14178929 (Version 1)
Quarter: 2017Q4

REPORT INFORMATION
  Report Type: Report from Study
  Country: IT (occurrence: IT)
  Receive Date: 20171110
  Receipt Date: 20171110
  Transmission Date: 20180321
  Serious: Yes (Death, Other)
  Sender: FDA-Public Use
  Company Number: IT-JNJFOC-20171110686

PATIENT

DRUGS (6)
  1. VINCRISTINE [Suspect]
     Active Substance: VINCRISTINE
     Indication: DIFFUSE LARGE B-CELL LYMPHOMA
     Route: 042
  2. OBINUTUZUMAB. [Suspect]
     Active Substance: OBINUTUZUMAB
     Indication: DIFFUSE LARGE B-CELL LYMPHOMA
     Route: 042
  3. CYCLOPHOSPHAMIDE. [Suspect]
     Active Substance: CYCLOPHOSPHAMIDE
     Indication: DIFFUSE LARGE B-CELL LYMPHOMA
     Route: 042
  4. RITUXIMAB. [Suspect]
     Active Substance: RITUXIMAB
     Indication: DIFFUSE LARGE B-CELL LYMPHOMA
     Route: 065
  5. DOXORUBICIN HYDROCHLORIDE. [Suspect]
     Active Substance: DOXORUBICIN HYDROCHLORIDE
     Indication: DIFFUSE LARGE B-CELL LYMPHOMA
     Route: 042
  6. PREDNISONE. [Suspect]
     Active Substance: PREDNISONE
     Indication: DIFFUSE LARGE B-CELL LYMPHOMA
     Route: 048

REACTIONS (22)
  - Gastrointestinal perforation [Unknown]
  - Cerebrovascular accident [Fatal]
  - Pulmonary embolism [Fatal]
  - Neutropenia [Unknown]
  - Tumour lysis syndrome [Unknown]
  - Infection [Unknown]
  - Infusion related reaction [Unknown]
  - Anaemia [Unknown]
  - Off label use [Unknown]
  - Thrombocytopenia [Unknown]
  - Nausea [Unknown]
  - Death [Fatal]
  - Septic shock [Fatal]
  - Pneumonia [Fatal]
  - Haemorrhage [Unknown]
  - Hepatitis B reactivation [Unknown]
  - Constipation [Unknown]
  - Leukopenia [Unknown]
  - Product use in unapproved indication [Unknown]
  - Febrile neutropenia [Unknown]
  - Opportunistic infection [Unknown]
  - Cardiac disorder [Unknown]
